FAERS Safety Report 7108365-7 (Version None)
Quarter: 2010Q4

REPORT INFORMATION
  Report Type: 
  Country: None (occurrence: None)
  Receive Date: 20101117
  Receipt Date: 20101108
  Transmission Date: 20110411
  Serious: Yes (Death, Hospitalization)
  Sender: FDA-Public Use
  Company Number: A0777631A

PATIENT
  Age: 78 Year
  Sex: Female
  Weight: 70 kg

DRUGS (6)
  1. AVANDIA [Suspect]
     Route: 048
  2. ZOCOR [Concomitant]
  3. PRINIVIL [Concomitant]
  4. LASIX [Concomitant]
  5. PRILOSEC [Concomitant]
  6. IMDUR [Concomitant]

REACTIONS (4)
  - CARDIAC FAILURE CONGESTIVE [None]
  - CARDIOGENIC SHOCK [None]
  - HEART INJURY [None]
  - MYOCARDIAL INFARCTION [None]
